FAERS Safety Report 22002167 (Version 1)
Quarter: 2023Q1

REPORT INFORMATION
  Report Type: Spontaneous
  Country: PL (occurrence: PL)
  Receive Date: 20230217
  Receipt Date: 20230217
  Transmission Date: 20230418
  Serious: Yes (Death)
  Sender: FDA-Public Use
  Company Number: PL-ALKEM LABORATORIES LIMITED-PL-ALKEM-2023-01560

PATIENT
  Age: 29 Year
  Sex: Male

DRUGS (7)
  1. AMPHETAMINE SULFATE [Suspect]
     Active Substance: AMPHETAMINE SULFATE
     Indication: Product used for unknown indication
     Dosage: UNK
     Route: 065
  2. CETIRIZINE HYDROCHLORIDE [Suspect]
     Active Substance: CETIRIZINE HYDROCHLORIDE
     Indication: Product used for unknown indication
     Dosage: UNK
     Route: 065
  3. 4-CHLOROETHCATHINONE [Suspect]
     Active Substance: 4-CHLOROETHCATHINONE
     Indication: Product used for unknown indication
     Dosage: UNK
     Route: 065
  4. 4-MEAP [Suspect]
     Active Substance: 4-MEAP
     Indication: Product used for unknown indication
     Dosage: UNK
     Route: 065
  5. 3-ETHYLMETHCATHINONE [Suspect]
     Active Substance: 3-ETHYLMETHCATHINONE
     Indication: Product used for unknown indication
     Dosage: UNK
     Route: 065
  6. METHAMPHETAMINE [Suspect]
     Active Substance: METHAMPHETAMINE
     Indication: Product used for unknown indication
     Dosage: UNK
     Route: 065
  7. XYLOMETAZOLINE [Suspect]
     Active Substance: XYLOMETAZOLINE
     Indication: Product used for unknown indication
     Dosage: UNK
     Route: 065

REACTIONS (2)
  - Toxicity to various agents [Fatal]
  - Abnormal behaviour [Unknown]
